FAERS Safety Report 8778071 (Version 1)
Quarter: 2012Q4

REPORT INFORMATION
  Report Type: 
  Country: US (occurrence: US)
  Receive Date: 20120911
  Receipt Date: 20120911
  Transmission Date: 20130627
  Serious: No
  Sender: FDA-Public Use
  Company Number: US-PFIZER INC-2012221429

PATIENT
  Age: 77 Year
  Sex: Female
  Weight: 68.03 kg

DRUGS (7)
  1. CELEBREX [Suspect]
     Indication: ROTATOR CUFF SYNDROME
     Dosage: 200 mg, 1x/day
     Route: 048
     Dates: start: 20120905
  2. MODURETIC [Concomitant]
     Indication: HYPERTENSION
     Dosage: UNK
  3. BENICAR [Concomitant]
     Indication: HYPERTENSION
     Dosage: UNK
  4. NORVASC [Concomitant]
     Indication: HYPERTENSION
     Dosage: UNK
  5. FLOVENT [Concomitant]
     Indication: ASTHMA
     Dosage: UNK
  6. CHLORCON [Concomitant]
     Dosage: 10 mg, 1x/day
  7. PRAVACHOL [Concomitant]
     Dosage: UNK

REACTIONS (1)
  - Palpitations [Unknown]
